FAERS Safety Report 5385523-3 (Version None)
Quarter: 2007Q3

REPORT INFORMATION
  Report Type: 
  Country: None (occurrence: None)
  Receive Date: 20070712
  Receipt Date: 20070706
  Transmission Date: 20080115
  Serious: Yes (Hospitalization)
  Sender: FDA-Public Use
  Company Number: A0659663A

PATIENT
  Sex: Female

DRUGS (5)
  1. AMERGE [Suspect]
     Indication: MIGRAINE
     Route: 048
  2. IMITREX [Suspect]
     Indication: MIGRAINE
     Route: 048
  3. AXERT [Suspect]
     Indication: MIGRAINE
     Route: 065
  4. FROVA [Suspect]
  5. RELPAX [Suspect]

REACTIONS (2)
  - ARTERIOSPASM CORONARY [None]
  - CARDIOMYOPATHY [None]
